FAERS Safety Report 12633230 (Version 2)
Quarter: 2016Q3

REPORT INFORMATION
  Report Type: Spontaneous
  Country: US (occurrence: US)
  Receive Date: 20160808
  Receipt Date: 20160808
  Transmission Date: 20161109
  Serious: No
  Sender: FDA-Public Use
  Company Number: US-BEH-2016059713

PATIENT
  Sex: Female
  Weight: 51 kg

DRUGS (17)
  1. HIZENTRA [Suspect]
     Active Substance: HUMAN IMMUNOGLOBULIN G
     Indication: IMMUNODEFICIENCY COMMON VARIABLE
     Route: 058
     Dates: start: 20120119
  2. ACETAMINOPHEN. [Concomitant]
     Active Substance: ACETAMINOPHEN
  3. DIPHENHYDRAMINE. [Concomitant]
     Active Substance: DIPHENHYDRAMINE
  4. FISH OIL [Concomitant]
     Active Substance: FISH OIL
  5. FOLIC ACID. [Concomitant]
     Active Substance: FOLIC ACID
  6. BUDESONIDE. [Concomitant]
     Active Substance: BUDESONIDE
  7. LEVOTHYROXINE. [Concomitant]
     Active Substance: LEVOTHYROXINE
  8. AMLODIPINE [Concomitant]
     Active Substance: AMLODIPINE BESYLATE
  9. VITAMIN C [Concomitant]
     Active Substance: ASCORBIC ACID
  10. POTASSIUM [Concomitant]
     Active Substance: POTASSIUM
  11. VITAMIN D [Concomitant]
     Active Substance: CHOLECALCIFEROL
  12. CALCIUM [Concomitant]
     Active Substance: CALCIUM
  13. LOPERAMIDE [Concomitant]
     Active Substance: LOPERAMIDE
  14. METHOTREXATE. [Concomitant]
     Active Substance: METHOTREXATE
  15. RESTASIS [Concomitant]
     Active Substance: CYCLOSPORINE
  16. EPIPEN [Concomitant]
     Active Substance: EPINEPHRINE
  17. VITAMIN B [Concomitant]
     Active Substance: VITAMIN B

REACTIONS (1)
  - Sinusitis [Unknown]
